FAERS Safety Report 4627310-7 (Version None)
Quarter: 2005Q1

REPORT INFORMATION
  Report Type: 
  Country: None (occurrence: None)
  Receive Date: 20050331
  Receipt Date: 20050318
  Transmission Date: 20050727
  Serious: Yes (Hospitalization)
  Sender: FDA-Public Use
  Company Number: 2005UW04459

PATIENT
  Age: 72 Year
  Sex: Male

DRUGS (11)
  1. CRESTOR [Suspect]
     Indication: BLOOD CHOLESTEROL INCREASED
     Dosage: 10 MG QD PO
     Dates: start: 20041201
  2. NORVASC [Concomitant]
  3. DIOVAN [Concomitant]
  4. TICLOPIDINE HCL [Concomitant]
  5. METOPROLOL TARTRATE [Concomitant]
  6. CIPRO ^MILES^ [Concomitant]
  7. NORFLOXACIN [Concomitant]
  8. SULPHANAMIDE [Concomitant]
  9. FOLIC ACID [Concomitant]
  10. ASPIRIN [Concomitant]
  11. COENZYME Q10 [Concomitant]

REACTIONS (7)
  - CYSTOSCOPY ABNORMAL [None]
  - DYSURIA [None]
  - NEOPLASM MALIGNANT [None]
  - PENILE PAIN [None]
  - PROCTALGIA [None]
  - PROSTATIC PAIN [None]
  - URINARY TRACT PAIN [None]
